FAERS Safety Report 5103191-2 (Version None)
Quarter: 2006Q3

REPORT INFORMATION
  Report Type: 
  Country: None (occurrence: None)
  Receive Date: 20060912
  Receipt Date: 20060912
  Transmission Date: 20061208
  Serious: Yes (Other)
  Sender: FDA-Public Use
  Company Number: None

PATIENT
  Age: 50 Year
  Sex: Female

DRUGS (6)
  1. BUSPIRONE HCL [Suspect]
     Indication: ANXIETY
     Dosage: 10 MG BID PO
     Route: 048
     Dates: start: 20060519
  2. DOXYCYCLINE [Concomitant]
  3. LORAZEPAM [Concomitant]
  4. XANAX [Concomitant]
  5. SSRI [Concomitant]
  6. LAMICTAL [Concomitant]

REACTIONS (2)
  - HEPATIC CYST [None]
  - LIVER DISORDER [None]
